FAERS Safety Report 17378583 (Version 1)
Quarter: 2020Q1

REPORT INFORMATION
  Report Type: Spontaneous
  Country: US (occurrence: US)
  Receive Date: 20200122
  Receipt Date: 20200122
  Transmission Date: 20200409
  Serious: Yes (Hospitalization)
  Sender: FDA-Public Use
  Company Number: None

PATIENT
  Age: 50 Year
  Sex: Male
  Weight: 117.93 kg

DRUGS (15)
  1. ULORIC [Concomitant]
     Active Substance: FEBUXOSTAT
  2. COENZYME Q-10 [Concomitant]
  3. DAPTOMYCIN 500MG [Suspect]
     Active Substance: DAPTOMYCIN
     Indication: CELLULITIS
     Dosage: ?          OTHER FREQUENCY:Q24;?
     Route: 042
     Dates: start: 20200113
  4. MAGNESIUM [Concomitant]
     Active Substance: MAGNESIUM
  5. TORSEMIDE 20MG TABLET [Concomitant]
  6. ZAROXOLYN [Concomitant]
     Active Substance: METOLAZONE
  7. GABAPENTIN. [Concomitant]
     Active Substance: GABAPENTIN
  8. PLAVIX [Concomitant]
     Active Substance: CLOPIDOGREL BISULFATE
  9. LOPRESSOR [Concomitant]
     Active Substance: METOPROLOL TARTRATE
  10. ASPRIN [Concomitant]
     Active Substance: ASPIRIN
  11. ZETIA [Concomitant]
     Active Substance: EZETIMIBE
  12. COZAAR [Concomitant]
     Active Substance: LOSARTAN POTASSIUM
  13. INSULIN ASPART [Concomitant]
     Active Substance: INSULIN ASPART
  14. ULORIC [Concomitant]
     Active Substance: FEBUXOSTAT
  15. VITAMIN D3 [Concomitant]
     Active Substance: CHOLECALCIFEROL

REACTIONS (3)
  - Chills [None]
  - Somnolence [None]
  - Tremor [None]

NARRATIVE: CASE EVENT DATE: 20200117
